FAERS Safety Report 6577995-3 (Version None)
Quarter: 2010Q1

REPORT INFORMATION
  Report Type: 
  Country: None (occurrence: None)
  Receive Date: 20100211
  Receipt Date: 20100204
  Transmission Date: 20100710
  Serious: Yes (Other)
  Sender: FDA-Public Use
  Company Number: US-TEVA-223421USA

PATIENT

DRUGS (1)
  1. PHENTERMINE HYDROCHLORIDE 37.5 MG [Suspect]

REACTIONS (1)
  - CONVULSION [None]
